FAERS Safety Report 8007926-0 (Version None)
Quarter: 2011Q4

REPORT INFORMATION
  Report Type: 
  Country: None (occurrence: None)
  Receive Date: 20111227
  Receipt Date: 20111219
  Transmission Date: 20120403
  Serious: Yes (Other)
  Sender: FDA-Public Use
  Company Number: US-SANOFI-AVENTIS-2011SA083779

PATIENT
  Sex: Female

DRUGS (7)
  1. LORAZEPAM [Concomitant]
  2. OXYCONTIN [Concomitant]
  3. SIMAVASTATIN [Concomitant]
  4. FEXOFENADINE HYDROCHLORIDE [Suspect]
     Dates: start: 20110101
  5. LOSARTAN POTASSIUM [Concomitant]
  6. THERAPEUTIC RADIOPHARMACEUTICALS [Suspect]
  7. COLACE [Concomitant]

REACTIONS (2)
  - DRUG INEFFECTIVE [None]
  - PELVIC FRACTURE [None]
